FAERS Safety Report 7928356-3 (Version None)
Quarter: 2011Q4

REPORT INFORMATION
  Report Type: 
  Country: None (occurrence: None)
  Receive Date: 20111118
  Receipt Date: 20111115
  Transmission Date: 20120403
  Serious: Yes (Death, Other)
  Sender: FDA-Public Use
  Company Number: PHHY2011US100963

PATIENT
  Age: 53 Year
  Sex: Male

DRUGS (2)
  1. PROPRANOLOL [Suspect]
     Dosage: 20MG, UNK
  2. DILTIAZEM HCL [Suspect]
     Dosage: 120MG UNK

REACTIONS (5)
  - CARDIAC ARREST [None]
  - BRADYCARDIA [None]
  - HYPOTENSION [None]
  - MULTI-ORGAN FAILURE [None]
  - INCORRECT DOSE ADMINISTERED [None]
